FAERS Safety Report 7577899-3 (Version None)
Quarter: 2011Q2

REPORT INFORMATION
  Report Type: 
  Country: None (occurrence: None)
  Receive Date: 20110628
  Receipt Date: 20110624
  Transmission Date: 20111010
  Serious: Yes (Death, Hospitalization)
  Sender: FDA-Public Use
  Company Number: PHHY2011MX56442

PATIENT
  Sex: Male

DRUGS (4)
  1. ZINTREPID [Concomitant]
     Dosage: 1 DF
     Route: 048
  2. ZOMETA [Suspect]
     Indication: PROSTATE CANCER
     Dosage: 1 APPLICATION EACH 15 DAYS FOR A MONTH AND A HALF
     Dates: start: 20110101, end: 20110201
  3. STRUGERON FORTE [Concomitant]
     Dosage: 1 DF,
     Route: 048
  4. BISOPROLOL FUMARATE [Concomitant]
     Dosage: 1 DF
     Route: 048
     Dates: start: 20070101

REACTIONS (2)
  - PNEUMONIA [None]
  - RENAL FAILURE ACUTE [None]
